FAERS Safety Report 24811768 (Version 1)
Quarter: 2025Q1

REPORT INFORMATION
  Report Type: Spontaneous
  Country: US (occurrence: US)
  Receive Date: 20250106
  Receipt Date: 20250106
  Transmission Date: 20250409
  Serious: No
  Sender: MERCK
  Company Number: US-009507513-2412USA006688

PATIENT
  Age: 80 Year
  Sex: Male

DRUGS (3)
  1. BELSOMRA [Suspect]
     Active Substance: SUVOREXANT
     Dosage: 20 MG ONCE DAILY
     Route: 048
  2. QUVIVIQ [Suspect]
     Active Substance: DARIDOREXANT
     Indication: Insomnia
     Dosage: 50 MG ONCE DAILY
     Dates: start: 20241214
  3. QUVIVIQ [Suspect]
     Active Substance: DARIDOREXANT
     Dosage: 25 MG ONCE DAILY
     Dates: start: 20241214

REACTIONS (7)
  - Product use issue [Unknown]
  - Product dose omission issue [Unknown]
  - Product availability issue [Unknown]
  - Product substitution [Unknown]
  - Rapid eye movement sleep behaviour disorder [Unknown]
  - Somnambulism [Unknown]
  - Agitation [Unknown]

NARRATIVE: CASE EVENT DATE: 20231201
